FAERS Safety Report 19352119 (Version 2)
Quarter: 2021Q2

REPORT INFORMATION
  Report Type: Spontaneous
  Country: JP (occurrence: JP)
  Receive Date: 20210601
  Receipt Date: 20210617
  Transmission Date: 20210717
  Serious: Yes (Other)
  Sender: FDA-Public Use
  Company Number: JP-BEH-2021132384

PATIENT
  Age: 66 Year
  Sex: Female
  Weight: 52.2 kg

DRUGS (6)
  1. ALBUMINAR?25 [Suspect]
     Active Substance: ALBUMIN HUMAN
     Indication: HYPOALBUMINAEMIA
     Dosage: 50 MILLILITER, SINGLE (1 DAY)
     Route: 042
     Dates: start: 20210519, end: 20210519
  2. MIDAZOLAM. [Concomitant]
     Active Substance: MIDAZOLAM
     Route: 065
  3. FENTANYL. [Concomitant]
     Active Substance: FENTANYL
     Route: 065
  4. DORMICUM [MIDAZOLAM] [Concomitant]
     Active Substance: MIDAZOLAM HYDROCHLORIDE
     Dosage: 0.6 MILLILITER, QH
     Route: 065
     Dates: start: 20210519, end: 20210519
  5. DORMICUM [MIDAZOLAM] [Concomitant]
     Active Substance: MIDAZOLAM HYDROCHLORIDE
     Dosage: 1.8 MILLILITER, QH
     Route: 065
     Dates: start: 20210519, end: 20210519
  6. DORMICUM [MIDAZOLAM] [Concomitant]
     Active Substance: MIDAZOLAM HYDROCHLORIDE
     Dosage: 0.8 MILLILITER, QH
     Route: 065
     Dates: start: 20210519, end: 20210519

REACTIONS (1)
  - Blood pressure decreased [Recovered/Resolved]

NARRATIVE: CASE EVENT DATE: 20210519
